FAERS Safety Report 19766521 (Version 1)
Quarter: 2021Q3

REPORT INFORMATION
  Report Type: Spontaneous
  Country: US (occurrence: US)
  Receive Date: 20210830
  Receipt Date: 20210830
  Transmission Date: 20211014
  Serious: Yes (Hospitalization, Other)
  Sender: FDA-Public Use
  Company Number: US-MYLANLABS-2021M1057047

PATIENT
  Age: 84 Year
  Sex: Male

DRUGS (1)
  1. COLCHICINE. [Suspect]
     Active Substance: COLCHICINE
     Indication: MYOCARDITIS
     Dosage: TWICE DAILY
     Route: 048
     Dates: start: 20200908, end: 20200929

REACTIONS (11)
  - Decreased appetite [Recovered/Resolved]
  - Muscle atrophy [Recovered/Resolved]
  - Dyspnoea [Unknown]
  - Hypophagia [Recovered/Resolved]
  - Pleural effusion [Unknown]
  - Weight decreased [Recovered/Resolved]
  - Off label use [Unknown]
  - Atrial fibrillation [Unknown]
  - Left ventricular failure [Unknown]
  - Blood immunoglobulin A increased [Unknown]
  - Dysgeusia [Recovered/Resolved]

NARRATIVE: CASE EVENT DATE: 20200908
